FAERS Safety Report 25906275 (Version 1)
Quarter: 2025Q4

REPORT INFORMATION
  Report Type: Spontaneous
  Country: US (occurrence: None)
  Receive Date: 20251009
  Receipt Date: 20251009
  Transmission Date: 20260118
  Serious: Yes (unspecified)
  Sender: FDA-CTU
  Company Number: None

PATIENT
  Age: 65 Year
  Sex: Female
  Weight: 103.5 kg

DRUGS (3)
  1. DEPO-MEDROL [Suspect]
     Active Substance: METHYLPREDNISOLONE ACETATE
     Indication: Arthralgia
     Dosage: OTHER QUANTITY : 40 INJECTION(S);?
     Dates: start: 20250728, end: 20250728
  2. VITAMIN D3 [Concomitant]
     Active Substance: CHOLECALCIFEROL
  3. VITAMINS [Concomitant]
     Active Substance: VITAMINS

REACTIONS (11)
  - Cardiac flutter [None]
  - Arthralgia [None]
  - Myalgia [None]
  - Pain in extremity [None]
  - Joint swelling [None]
  - Fatigue [None]
  - Productive cough [None]
  - Swelling [None]
  - Pain [None]
  - Tendon pain [None]
  - Inflammation [None]

NARRATIVE: CASE EVENT DATE: 20250811
